FAERS Safety Report 4330497-7 (Version None)
Quarter: 2004Q2

REPORT INFORMATION
  Report Type: 
  Country: None (occurrence: None)
  Receive Date: 20040401
  Receipt Date: 20040401
  Transmission Date: 20050107
  Serious: Yes (Hospitalization)
  Sender: FDA-Public Use
  Company Number: None

PATIENT
  Age: 70 Year
  Sex: Male

DRUGS (10)
  1. SIMVASTATIN [Suspect]
     Indication: DYSLIPIDAEMIA
     Dosage: 80 MG QD ORAL
     Route: 048
     Dates: start: 19990901, end: 20040212
  2. GEMFIBROZIL [Suspect]
     Indication: DYSLIPIDAEMIA
     Dosage: 600 MG BID ORAL
     Route: 048
     Dates: start: 20020715, end: 20040212
  3. FUROSEMIDE [Concomitant]
  4. ATENOLOL [Concomitant]
  5. NITROGLYCERIN [Concomitant]
  6. ASPIRIN [Concomitant]
  7. DOXAZOSIN MESYLATE [Concomitant]
  8. LANOXIN [Concomitant]
  9. HYDRALAZINE HCL [Concomitant]
  10. ISOSORBIDE DINITRATE [Concomitant]

REACTIONS (4)
  - BLOOD CREATININE INCREASED [None]
  - POLYMYOSITIS [None]
  - RENAL IMPAIRMENT [None]
  - RHABDOMYOLYSIS [None]
